FAERS Safety Report 9663160 (Version 4)
Quarter: 2015Q1

REPORT INFORMATION
  Report Type: Report from Study
  Country: JP (occurrence: JP)
  Receive Date: 20131101
  Receipt Date: 20150107
  Transmission Date: 20150721
  Serious: Yes (Death, Life-Threatening, Other)
  Sender: FDA-Public Use
  Company Number: JP-AMGEN-JPNCT2013076777

PATIENT
  Age: 1 Year
  Sex: Female
  Weight: 8.2 kg

DRUGS (18)
  1. BENAMBAX [Concomitant]
     Active Substance: PENTAMIDINE
     Indication: PROPHYLAXIS
     Dosage: UNK
     Route: 065
  2. SELBEX [Concomitant]
     Active Substance: TEPRENONE
     Indication: UPPER GASTROINTESTINAL HAEMORRHAGE
     Dosage: UNK
     Route: 048
  3. ONEALFA [Concomitant]
     Active Substance: ALFACALCIDOL
     Indication: HYPOPARATHYROIDISM
     Dosage: UNK
     Route: 048
  4. ALDACTONE [Concomitant]
     Active Substance: SPIRONOLACTONE
     Indication: FALLOT^S TETRALOGY
  5. ROMIPLOSTIM - KHK [Suspect]
     Active Substance: ROMIPLOSTIM
     Indication: IMMUNE THROMBOCYTOPENIC PURPURA
     Dosage: 10 MUG/KG, QD
     Route: 058
     Dates: start: 20130404, end: 20130613
  6. BIOTIN [Concomitant]
     Active Substance: BIOTIN
     Indication: MALNUTRITION
     Dosage: UNK
     Route: 065
  7. RED BLOOD CELLS, CONCENTRATED [Concomitant]
     Active Substance: HUMAN RED BLOOD CELL
     Indication: IRON DEFICIENCY ANAEMIA
     Dosage: UNK
  8. PREDONINE [Concomitant]
     Active Substance: PREDNISOLONE\PREDNISOLONE ACETATE\PREDNISOLONE SODIUM SUCCINATE
     Indication: IMMUNE THROMBOCYTOPENIC PURPURA
     Dosage: 0.25 MG/KG, UNK
     Route: 048
     Dates: start: 20130402, end: 20130414
  9. TRICLORYL [Concomitant]
     Active Substance: TRICLOFOS SODIUM
     Indication: SEDATION
     Dosage: UNK
     Route: 048
  10. ALDACTONE [Concomitant]
     Active Substance: SPIRONOLACTONE
     Indication: CARDIAC FAILURE
     Dosage: UNK
     Route: 048
  11. ALLOID G [Concomitant]
     Active Substance: SODIUM ALGINATE
     Indication: UPPER GASTROINTESTINAL HAEMORRHAGE
     Dosage: UNK
     Route: 048
  12. VENILON [Concomitant]
     Active Substance: HUMAN IMMUNOGLOBULIN G
     Indication: IMMUNE THROMBOCYTOPENIC PURPURA
     Dosage: 1000 MG/KG, UNK
     Route: 042
     Dates: start: 20130321, end: 20130521
  13. LASIX [Concomitant]
     Active Substance: FUROSEMIDE
     Indication: CARDIAC FAILURE
     Dosage: UNK
     Route: 048
  14. INCREMIN                           /00023544/ [Concomitant]
     Indication: IRON DEFICIENCY ANAEMIA
     Dosage: UNK
     Route: 048
  15. TAKEPRON [Concomitant]
     Active Substance: LANSOPRAZOLE
     Indication: UPPER GASTROINTESTINAL HAEMORRHAGE
     Dosage: UNK
     Route: 048
  16. LASIX [Concomitant]
     Active Substance: FUROSEMIDE
     Indication: FALLOT^S TETRALOGY
  17. OMEPRAL                            /00661201/ [Concomitant]
     Active Substance: OMEPRAZOLE
     Indication: UPPER GASTROINTESTINAL HAEMORRHAGE
     Dosage: UNK
     Route: 065
  18. ELNEOPA NO.1 [Concomitant]
     Indication: MALNUTRITION
     Dosage: UNK
     Route: 041

REACTIONS (9)
  - Cerebral haemorrhage [Fatal]
  - Upper gastrointestinal haemorrhage [Not Recovered/Not Resolved]
  - Epistaxis [Recovering/Resolving]
  - Neutrophil count decreased [Recovering/Resolving]
  - Hepatic function abnormal [Recovering/Resolving]
  - Enteritis infectious [Recovered/Resolved]
  - Lower gastrointestinal haemorrhage [Not Recovered/Not Resolved]
  - Pneumonia [Recovered/Resolved]
  - Refractoriness to platelet transfusion [Not Recovered/Not Resolved]

NARRATIVE: CASE EVENT DATE: 20130405
